FAERS Safety Report 9280030 (Version 1)
Quarter: 2013Q2

REPORT INFORMATION
  Report Type: Spontaneous
  Country: US (occurrence: None)
  Receive Date: 20130506
  Receipt Date: 20130506
  Transmission Date: 20140414
  Serious: Yes (Other)
  Sender: FDA-Public Use
  Company Number: None

PATIENT
  Age: 54 Year
  Sex: Female

DRUGS (4)
  1. PROZAC [Suspect]
     Indication: ANXIETY
     Dosage: PROZAC  QDAY  40 MG PO?LONG TERM USE - ON IT FOR YEARS PREVIOUSLY
     Route: 048
  2. PROZAC [Suspect]
     Indication: AFFECTIVE DISORDER
     Dosage: PROZAC  QDAY  40 MG PO?LONG TERM USE - ON IT FOR YEARS PREVIOUSLY
     Route: 048
  3. PROZAC [Suspect]
     Indication: MAJOR DEPRESSION
     Dosage: PROZAC  QDAY  40 MG PO?LONG TERM USE - ON IT FOR YEARS PREVIOUSLY
     Route: 048
  4. PROZAC [Suspect]
     Indication: GENERALISED ANXIETY DISORDER
     Dosage: PROZAC  QDAY  40 MG PO?LONG TERM USE - ON IT FOR YEARS PREVIOUSLY
     Route: 048

REACTIONS (2)
  - Micturition urgency [None]
  - Pollakiuria [None]
